FAERS Safety Report 24302002 (Version 1)
Quarter: 2024Q3

REPORT INFORMATION
  Report Type: Spontaneous
  Country: FR (occurrence: FR)
  Receive Date: 20240910
  Receipt Date: 20240910
  Transmission Date: 20241017
  Serious: Yes (Other)
  Sender: MYLAN
  Company Number: None

PATIENT
  Age: 69 Year
  Sex: Female
  Weight: 77 kg

DRUGS (1)
  1. ATORVASTATIN [Suspect]
     Active Substance: ATORVASTATIN
     Indication: Dyslipidaemia
     Dosage: 80 MILLIGRAM, QD
     Route: 048
     Dates: start: 20210901, end: 20240601

REACTIONS (1)
  - Hepatic cytolysis [Recovered/Resolved]

NARRATIVE: CASE EVENT DATE: 20240531
